FAERS Safety Report 11644024 (Version 1)
Quarter: 2015Q4

REPORT INFORMATION
  Report Type: Spontaneous
  Country: US (occurrence: None)
  Receive Date: 20151019
  Receipt Date: 20151019
  Transmission Date: 20160304
  Serious: Yes (Death)
  Sender: FDA-Public Use
  Company Number: None

PATIENT
  Age: 65 Year
  Sex: Female

DRUGS (10)
  1. OMEPRAZOLE. [Concomitant]
     Active Substance: OMEPRAZOLE
  2. CELLCEPT [Concomitant]
     Active Substance: MYCOPHENOLATE MOFETIL\MYCOPHENOLATE MOFETIL HYDROCHLORIDE
  3. LETAIRIS [Suspect]
     Active Substance: AMBRISENTAN
     Indication: HEART DISEASE CONGENITAL
     Route: 048
     Dates: start: 201402
  4. SPIRONOLACTONE. [Concomitant]
     Active Substance: SPIRONOLACTONE
  5. SPIRIVA [Concomitant]
     Active Substance: TIOTROPIUM BROMIDE MONOHYDRATE
  6. PROMACTA [Concomitant]
     Active Substance: ELTROMBOPAG OLAMINE
  7. KLOR-CON [Concomitant]
     Active Substance: POTASSIUM CHLORIDE
  8. VELETRI [Concomitant]
     Active Substance: EPOPROSTENOL
  9. FUROSEMIDE. [Concomitant]
     Active Substance: FUROSEMIDE
  10. REVATIO [Concomitant]
     Active Substance: SILDENAFIL CITRATE

REACTIONS (8)
  - Pulmonary arterial hypertension [None]
  - General physical health deterioration [None]
  - Thrombocytopenia [None]
  - Bronchiectasis [None]
  - Brain natriuretic peptide increased [None]
  - Hypoxia [None]
  - Interstitial lung disease [None]
  - Cardiac failure congestive [None]

NARRATIVE: CASE EVENT DATE: 20151004
